FAERS Safety Report 9747455 (Version 2)
Quarter: 2014Q1

REPORT INFORMATION
  Report Type: Spontaneous
  Country: US (occurrence: US)
  Receive Date: 20131212
  Receipt Date: 20140109
  Transmission Date: 20141002
  Serious: Yes (Hospitalization)
  Sender: FDA-Public Use
  Company Number: US-BIOGENIDEC-2013BI118019

PATIENT
  Age: 48 Year
  Sex: Female
  Weight: 95 kg

DRUGS (6)
  1. TECFIDERA [Suspect]
     Indication: MULTIPLE SCLEROSIS
     Route: 048
     Dates: start: 20131029
  2. TECFIDERA [Suspect]
     Indication: MULTIPLE SCLEROSIS
     Route: 048
     Dates: start: 20131101
  3. GABAPENTIN [Concomitant]
  4. NAPROXEN [Concomitant]
  5. PROPRANOLOL HCL [Concomitant]
  6. TIZANIDINE HCL [Concomitant]

REACTIONS (6)
  - Hypertension [Recovered/Resolved]
  - Pain [Unknown]
  - Asthenia [Unknown]
  - Abasia [Unknown]
  - Dizziness [Unknown]
  - Dyspnoea [Unknown]
